FAERS Safety Report 11539067 (Version 2)
Quarter: 2015Q3

REPORT INFORMATION
  Report Type: Report from Study
  Country: US (occurrence: US)
  Receive Date: 20150923
  Receipt Date: 20150930
  Transmission Date: 20151125
  Serious: Yes (Other)
  Sender: FDA-Public Use
  Company Number: US-GILEAD-2015-0172846

PATIENT
  Age: 79 Year
  Sex: Female

DRUGS (2)
  1. AMBRISENTAN [Suspect]
     Active Substance: AMBRISENTAN
     Indication: CONNECTIVE TISSUE DISORDER
  2. AMBRISENTAN [Suspect]
     Active Substance: AMBRISENTAN
     Indication: PULMONARY HYPERTENSION
     Dosage: 10 MG, QD
     Route: 065
     Dates: start: 20081230

REACTIONS (7)
  - Dry eye [Unknown]
  - Constipation [Unknown]
  - Teeth brittle [Unknown]
  - Sjogren^s syndrome [Unknown]
  - Eye infection [Unknown]
  - Gastrooesophageal reflux disease [Unknown]
  - Dry throat [Unknown]
